FAERS Safety Report 20361736 (Version 1)
Quarter: 2022Q1

REPORT INFORMATION
  Report Type: Spontaneous
  Country: GB (occurrence: GB)
  Receive Date: 20220121
  Receipt Date: 20220121
  Transmission Date: 20220423
  Serious: Yes (Other)
  Sender: FDA-Public Use
  Company Number: None

PATIENT

DRUGS (5)
  1. PREDNISOLONE [Suspect]
     Active Substance: PREDNISOLONE
     Indication: Transient ischaemic attack
     Dosage: 60 MG TABLET (REDUCED THE DOSE TO 50 MG AS FELT THYROID WAS OVER ACTIVE.)
     Route: 048
     Dates: start: 20211220
  2. PREDNISOLONE [Suspect]
     Active Substance: PREDNISOLONE
     Dosage: 50 MG  TABLET (REDUCED THE DOSE TO 50MG AS FELT THYROID WAS OVER ACTIVE.)
     Route: 048
     Dates: start: 20211220
  3. AMLODIPINE [Concomitant]
     Active Substance: AMLODIPINE BESYLATE
     Dosage: 5 MG
  4. CLOPIDOGREL [Concomitant]
     Active Substance: CLOPIDOGREL BISULFATE
     Dosage: 75 MG
  5. THYROXINE [Concomitant]
     Active Substance: LEVOTHYROXINE
     Dosage: 75 MG

REACTIONS (5)
  - Glossodynia [Not Recovered/Not Resolved]
  - Tremor [Recovering/Resolving]
  - Euphoric mood [Recovering/Resolving]
  - Insomnia [Not Recovered/Not Resolved]
  - Product use in unapproved indication [Unknown]

NARRATIVE: CASE EVENT DATE: 20211220
